FAERS Safety Report 26078180 (Version 1)
Quarter: 2025Q4

REPORT INFORMATION
  Report Type: Spontaneous
  Country: EU (occurrence: EU)
  Receive Date: 20251122
  Receipt Date: 20251122
  Transmission Date: 20260118
  Serious: Yes (Death)
  Sender: TEVA
  Company Number: None

PATIENT
  Age: 18 Year
  Sex: Male

DRUGS (1)
  1. ISOTRETINOIN [Suspect]
     Active Substance: ISOTRETINOIN
     Indication: Folliculitis
     Dosage: 1 CAPSULE ONCE A DAY; ISOTRETINOIN ACTAVIS
     Route: 048
     Dates: start: 2024, end: 20250415

REACTIONS (3)
  - Anxiety [Fatal]
  - Learning disorder [Fatal]
  - Completed suicide [Fatal]

NARRATIVE: CASE EVENT DATE: 20240101
